FAERS Safety Report 4501837-0 (Version None)
Quarter: 2004Q4

REPORT INFORMATION
  Report Type: 
  Country: None (occurrence: None)
  Receive Date: 20041115
  Receipt Date: 20041115
  Transmission Date: 20050328
  Serious: Yes (Hospitalization)
  Sender: FDA-Public Use
  Company Number: None

PATIENT
  Age: 59 Year
  Sex: Male
  Weight: 83.9 kg

DRUGS (17)
  1. FOSINOPRIL SODIUM [Suspect]
  2. MAXZIDE [Suspect]
     Dosage: 25 MG TAB
  3. HYDROCHLOROTHIAZIDE [Concomitant]
  4. INSULIN 70/30 NPH/REG [Concomitant]
  5. OMEPRAZOLE [Concomitant]
  6. PHENYTOIN [Concomitant]
  7. FOLIC ACID [Concomitant]
  8. DIPENHYDRAMINE [Concomitant]
  9. RISPERIDONE [Concomitant]
  10. MOISTURIZING CREAM [Concomitant]
  11. INSULIN HUMAN NPH [Concomitant]
  12. INSULIN HUMAN REGULAR [Concomitant]
  13. SIMVASTATIN [Concomitant]
  14. ATENOLOL [Concomitant]
  15. BACITRACIN OIN [Concomitant]
  16. PIOGLITAZONE HCL [Concomitant]
  17. ACETAMINOPHEN W/ CODEINE [Concomitant]

REACTIONS (1)
  - HYPERKALAEMIA [None]
